FAERS Safety Report 23325467 (Version 1)
Quarter: 2023Q4

REPORT INFORMATION
  Report Type: Spontaneous
  Country: US (occurrence: US)
  Receive Date: 20231221
  Receipt Date: 20231221
  Transmission Date: 20240109
  Serious: No
  Sender: FDA-Public Use
  Company Number: US-SA-SAC20231219000181

PATIENT
  Age: 55 Year
  Sex: Female
  Weight: 61.2 kg

DRUGS (9)
  1. DUPIXENT [Suspect]
     Active Substance: DUPILUMAB
     Indication: Dermatitis atopic
     Dosage: 300MG, QOW
     Route: 058
     Dates: start: 201806
  2. SEGLENTIS [Concomitant]
     Active Substance: CELECOXIB\TRAMADOL HYDROCHLORIDE
  3. VITAMIN D3 [Concomitant]
     Active Substance: CHOLECALCIFEROL
  4. LYSINE [Concomitant]
     Active Substance: LYSINE
  5. LORATADINE [Concomitant]
     Active Substance: LORATADINE
  6. EPINEPHRINE [Concomitant]
     Active Substance: EPINEPHRINE
     Dosage: 0.15MG/0.3
  7. OPZELURA [Concomitant]
     Active Substance: RUXOLITINIB PHOSPHATE
  8. ZYRTEC [Concomitant]
     Active Substance: CETIRIZINE HYDROCHLORIDE
  9. ENBREL [Concomitant]
     Active Substance: ETANERCEPT

REACTIONS (1)
  - COVID-19 [Unknown]

NARRATIVE: CASE EVENT DATE: 20231210
